FAERS Safety Report 10196603 (Version 3)
Quarter: 2014Q2

REPORT INFORMATION
  Report Type: Spontaneous
  Country: AU (occurrence: None)
  Receive Date: 20140522
  Receipt Date: 20140602
  Transmission Date: 20141212
  Serious: Yes (Hospitalization)
  Sender: FDA-Public Use
  Company Number: 2342157

PATIENT
  Age: 8 Year
  Sex: Male

DRUGS (5)
  1. VINCRISTINE SULFATE [Suspect]
     Indication: B PRECURSOR TYPE ACUTE LEUKAEMIA
  2. METHOTREXATE [Suspect]
     Indication: B PRECURSOR TYPE ACUTE LEUKAEMIA
     Route: 037
  3. DEXAMETHASONE [Suspect]
     Indication: B PRECURSOR TYPE ACUTE LEUKAEMIA
  4. DEXAMETHASONE [Suspect]
  5. PEG-ASPARAGINASE [Suspect]
     Indication: B PRECURSOR TYPE ACUTE LEUKAEMIA

REACTIONS (14)
  - Headache [None]
  - Abdominal pain upper [None]
  - Neutropenia [None]
  - Lipase increased [None]
  - Alanine aminotransferase increased [None]
  - Blood bilirubin increased [None]
  - Cholecystitis [None]
  - Cholangitis [None]
  - Abscess fungal [None]
  - Brain abscess [None]
  - Bacillus infection [None]
  - Cholecystitis [None]
  - Bacteraemia [None]
  - Brain oedema [None]
